FAERS Safety Report 5443045-5 (Version None)
Quarter: 2007Q3

REPORT INFORMATION
  Report Type: 
  Country: None (occurrence: None)
  Receive Date: 20070822
  Receipt Date: 20070808
  Transmission Date: 20080115
  Serious: Yes (Hospitalization)
  Sender: FDA-Public Use
  Company Number: WSDF_00667

PATIENT
  Age: 72 Year
  Sex: Male

DRUGS (4)
  1. WINRHO SDF [Suspect]
     Indication: IDIOPATHIC THROMBOCYTOPENIC PURPURA
     Dates: start: 20070713, end: 20070713
  2. CETUXIMAB [Concomitant]
  3. BEVACIZUMAB [Concomitant]
  4. CARBOPLATIN [Concomitant]

REACTIONS (8)
  - CATHETER SITE OEDEMA [None]
  - CATHETER SITE PAIN [None]
  - DYSPNOEA [None]
  - HAEMOLYTIC ANAEMIA [None]
  - HYPOTENSION [None]
  - LOCAL SWELLING [None]
  - MYOCARDIAL INFARCTION [None]
  - PAIN [None]
